FAERS Safety Report 8924782 (Version 2)
Quarter: 2012Q4

REPORT INFORMATION
  Report Type: 
  Country: CA (occurrence: CA)
  Receive Date: 20121126
  Receipt Date: 20121221
  Transmission Date: 20130627
  Serious: No
  Sender: FDA-Public Use
  Company Number: CA-PFIZER INC-2012293704

PATIENT
  Age: 71 Year
  Sex: Male
  Weight: 65.9 kg

DRUGS (20)
  1. EFFEXOR XR [Suspect]
     Indication: CHRONIC DEPRESSION
     Dosage: UNK
     Dates: start: 20090904
  2. EFFEXOR XR [Suspect]
     Dosage: 112.5 mg, UNK
     Dates: end: 20100527
  3. CITALOPRAM [Concomitant]
     Dosage: 10 mg, UNK
  4. CITALOPRAM [Concomitant]
     Dosage: 20 mg, UNK
     Dates: start: 201003, end: 201010
  5. ACETAMINOPHEN [Concomitant]
     Dosage: 325 mg, 2 pills 3x/daily and 2 pills as needed
  6. MORPHINE [Concomitant]
     Dosage: 5 mg, 12 pills, 3x/daily as needed
  7. ASA [Concomitant]
     Dosage: 80 mg, 1x/day
  8. AMLODIPINE [Concomitant]
     Dosage: 5 mg, 1x/day
  9. CLONIDINE [Concomitant]
     Dosage: 0.1 mg half pills 2x/daily as needed
  10. HYDROCHLOROTHIAZIDE [Concomitant]
     Dosage: 12.5 mg, 1x/day
  11. RAMIPRIL [Concomitant]
     Dosage: 2.5 mg once daily and 5 mg once daily
  12. FINASTERIDE [Concomitant]
     Dosage: 5 mg, 1x/day
  13. TAMSULOSIN [Concomitant]
     Dosage: 0.4 mg, UNK
  14. SOLIFENACIN [Concomitant]
     Dosage: 5 mg, 1x/day
  15. LACTULOSE [Concomitant]
     Dosage: 0.667 g/mL, 30 mL, 1x/day
  16. SENNOSIDES [Concomitant]
     Dosage: 17.2 mg (8.6mg x 2), 1x/day at bedtime
  17. PANTOPRAZOLE [Concomitant]
     Dosage: 40 mg, 1x/day
  18. MIRTAZAPINE [Concomitant]
     Dosage: 15 mg half pill at bedtime
  19. OXAZEPAM [Concomitant]
     Dosage: 15 mg half pill, 2x/day
  20. SODIUM CHLORIDE [Concomitant]
     Dosage: 0.9 %. 1 spray in each nostril, 4x/day

REACTIONS (1)
  - Drug ineffective [Recovered/Resolved]
